FAERS Safety Report 16675962 (Version 3)
Quarter: 2019Q3

REPORT INFORMATION
  Report Type: Report from Study
  Country: None (occurrence: US)
  Receive Date: 20190807
  Receipt Date: 20190924
  Transmission Date: 20191004
  Serious: Yes (Hospitalization, Other)
  Sender: FDA-Public Use
  Company Number: US-ABBVIE-19K-163-2873986-00

PATIENT
  Age: 72 Year
  Sex: Male
  Weight: 104.42 kg

DRUGS (4)
  1. HUMIRA [Suspect]
     Active Substance: ADALIMUMAB
     Indication: COLITIS ULCERATIVE
     Dosage: LOADING DOSE: DAY 1
     Route: 058
     Dates: start: 20190717, end: 20190717
  2. HUMIRA [Suspect]
     Active Substance: ADALIMUMAB
     Indication: COLITIS ULCERATIVE
     Route: 058
     Dates: start: 201908
  3. XOLAIR [Concomitant]
     Active Substance: OMALIZUMAB
     Indication: ASTHMA
     Route: 065
  4. HUMIRA [Suspect]
     Active Substance: ADALIMUMAB
     Route: 058
     Dates: start: 20190811, end: 20190811

REACTIONS (13)
  - Thoracic vertebral fracture [Not Recovered/Not Resolved]
  - Spinal fracture [Unknown]
  - Aortic aneurysm [Unknown]
  - Diarrhoea [Unknown]
  - Faeces discoloured [Unknown]
  - Sepsis [Recovering/Resolving]
  - Abnormal faeces [Unknown]
  - Pain [Unknown]
  - Bursitis [Recovering/Resolving]
  - Loss of personal independence in daily activities [Not Recovered/Not Resolved]
  - Cellulitis [Recovering/Resolving]
  - Back pain [Recovering/Resolving]
  - Compression fracture [Unknown]

NARRATIVE: CASE EVENT DATE: 2019
